FAERS Safety Report 13749476 (Version 2)
Quarter: 2017Q3

REPORT INFORMATION
  Report Type: Report from Study
  Country: CA (occurrence: CA)
  Receive Date: 20170713
  Receipt Date: 20170904
  Transmission Date: 20171127
  Serious: Yes (Other)
  Sender: FDA-Public Use
  Company Number: PHHY2016CA168412

PATIENT
  Age: 59 Year
  Sex: Female

DRUGS (6)
  1. SYNTHROID [Concomitant]
     Active Substance: LEVOTHYROXINE SODIUM
     Indication: PRODUCT USED FOR UNKNOWN INDICATION
     Dosage: 0.05 MG, QD
     Route: 048
     Dates: start: 20170310
  2. PANTOLOC [Concomitant]
     Active Substance: PANTOPRAZOLE SODIUM
     Dosage: UNK, QOD (EVERY SECOND DAY)
  3. SANDOSTATIN LAR DEPOT [Suspect]
     Active Substance: OCTREOTIDE ACETATE
     Indication: CARCINOID TUMOUR OF THE SMALL BOWEL
     Dosage: 20 MG, QMO (EVERY 4 WEEKS)
     Route: 030
     Dates: start: 20160802
  4. PANTOLOC [Concomitant]
     Active Substance: PANTOPRAZOLE SODIUM
     Indication: PRODUCT USED FOR UNKNOWN INDICATION
     Dosage: EVERY 2 DAYS
     Route: 048
  5. BIOTIN [Concomitant]
     Active Substance: BIOTIN
     Indication: PRODUCT USED FOR UNKNOWN INDICATION
     Dosage: 5000 UG, QD (ONCE DAILY)
     Route: 065
     Dates: start: 2016
  6. TRIPLE STRENGTH FISH OIL [Concomitant]
     Indication: PRODUCT USED FOR UNKNOWN INDICATION
     Dosage: 900 MG, QD (ONCE DAILY)
     Route: 065
     Dates: start: 2016

REACTIONS (13)
  - Injection site haemorrhage [Recovered/Resolved]
  - Yellow skin [Unknown]
  - Bile duct stenosis [Unknown]
  - Thyroid hormones increased [Unknown]
  - Heart rate increased [Unknown]
  - Alopecia [Recovering/Resolving]
  - Acne [Unknown]
  - Ocular icterus [Unknown]
  - Body temperature decreased [Unknown]
  - Diarrhoea [Unknown]
  - Supraventricular tachycardia [Unknown]
  - Jaundice [Unknown]
  - Blood pressure systolic increased [Unknown]

NARRATIVE: CASE EVENT DATE: 20161108
